FAERS Safety Report 8295510-3 (Version None)
Quarter: 2012Q2

REPORT INFORMATION
  Report Type: 
  Country: None (occurrence: None)
  Receive Date: 20120418
  Receipt Date: 20120416
  Transmission Date: 20120825
  Serious: Yes (Hospitalization, Other)
  Sender: FDA-Public Use
  Company Number: PHHY2011DE09626

PATIENT
  Sex: Male
  Weight: 183 kg

DRUGS (4)
  1. TASIGNA [Suspect]
     Indication: CHRONIC MYELOID LEUKAEMIA
     Dosage: 800 MG/DAY
     Route: 048
     Dates: start: 20110129
  2. TASIGNA [Suspect]
     Dosage: 400 MG/DAY
     Route: 048
     Dates: start: 20110313
  3. DIOVAN [Concomitant]
  4. BERODUAL [Concomitant]

REACTIONS (22)
  - PLEURAL EFFUSION [None]
  - SLEEP APNOEA SYNDROME [None]
  - NAUSEA [None]
  - SPLENOMEGALY [None]
  - LIPASE INCREASED [None]
  - VISUAL IMPAIRMENT [None]
  - TYPE 2 DIABETES MELLITUS [None]
  - GLYCOSYLATED HAEMOGLOBIN INCREASED [None]
  - CHOLELITHIASIS [None]
  - DIARRHOEA [None]
  - ABDOMINAL PAIN [None]
  - GENERAL PHYSICAL HEALTH DETERIORATION [None]
  - KIDNEY ENLARGEMENT [None]
  - LACRIMAL DISORDER [None]
  - MUSCLE SPASMS [None]
  - PRURITUS [None]
  - C-REACTIVE PROTEIN INCREASED [None]
  - THIRST [None]
  - DRY MOUTH [None]
  - PANCREATITIS [None]
  - DECREASED APPETITE [None]
  - SLEEP DISORDER [None]
